FAERS Safety Report 7756459-5 (Version None)
Quarter: 2011Q3

REPORT INFORMATION
  Report Type: 
  Country: None (occurrence: None)
  Receive Date: 20110915
  Receipt Date: 20110915
  Transmission Date: 20111222
  Serious: No
  Sender: FDA-Public Use
  Company Number: None

PATIENT
  Sex: Female
  Weight: 79.8331 kg

DRUGS (1)
  1. TEGRETOL [Suspect]
     Indication: CONVULSION
     Dosage: 300 MG TWICE DAILY BY MOUTH
     Route: 048
     Dates: start: 20060307

REACTIONS (1)
  - PRODUCT SUBSTITUTION ISSUE [None]
